FAERS Safety Report 6151210-7 (Version None)
Quarter: 2009Q2

REPORT INFORMATION
  Report Type: 
  Country: None (occurrence: None)
  Receive Date: 20090410
  Receipt Date: 20071109
  Transmission Date: 20091009
  Serious: Yes (Death, Hospitalization, Other)
  Sender: FDA-Public Use
  Company Number: US-ASTRAZENECA-2007UW09469

PATIENT
  Age: 11326 Day
  Sex: Male
  Weight: 157.4 kg

DRUGS (17)
  1. SEROQUEL [Suspect]
     Indication: BIPOLAR DISORDER
     Route: 048
     Dates: start: 19970101, end: 20060807
  2. SEROQUEL [Suspect]
     Indication: DEPRESSION
     Route: 048
     Dates: start: 19970101, end: 20060807
  3. SEROQUEL [Suspect]
     Indication: SCHIZOPHRENIA
     Route: 048
     Dates: start: 19970101, end: 20060807
  4. SEROQUEL [Suspect]
     Dosage: 25 MG TO 800 MG
     Route: 048
     Dates: start: 20040112, end: 20060807
  5. SEROQUEL [Suspect]
     Dosage: 25 MG TO 800 MG
     Route: 048
     Dates: start: 20040112, end: 20060807
  6. SEROQUEL [Suspect]
     Dosage: 25 MG TO 800 MG
     Route: 048
     Dates: start: 20040112, end: 20060807
  7. DEPAKOTE [Concomitant]
     Dates: start: 19960101
  8. LOXITANE [Concomitant]
     Dates: start: 19960101
  9. ZOLOFT [Concomitant]
     Dates: start: 19960101
  10. PAXIL [Concomitant]
     Dates: start: 19970101
  11. WELLBUTRIN [Concomitant]
  12. ABILIFY [Concomitant]
  13. ASPIRIN [Concomitant]
  14. AVAPRO [Concomitant]
  15. AMARYL [Concomitant]
  16. SYNTHROID [Concomitant]
  17. GLYBURIDE [Concomitant]

REACTIONS (15)
  - CARDIAC ARREST [None]
  - HALLUCINATION [None]
  - HEPATIC NECROSIS [None]
  - HYPOTENSION [None]
  - HYPOXIA [None]
  - METABOLIC ACIDOSIS [None]
  - MOOD ALTERED [None]
  - PANCREATITIS ACUTE [None]
  - PANCREATITIS CHRONIC [None]
  - PARANOIA [None]
  - RENAL FAILURE ACUTE [None]
  - RESPIRATORY FAILURE [None]
  - RHABDOMYOLYSIS [None]
  - SEPTIC SHOCK [None]
  - SLEEP APNOEA SYNDROME [None]
